FAERS Safety Report 11252925 (Version 2)
Quarter: 2015Q3

REPORT INFORMATION
  Report Type: Report from Study
  Country: AU (occurrence: AU)
  Receive Date: 20150708
  Receipt Date: 20150722
  Transmission Date: 20151125
  Serious: Yes (Death, Hospitalization)
  Sender: FDA-Public Use
  Company Number: PHHY2015AU079349

PATIENT
  Age: 54 Year
  Sex: Female

DRUGS (5)
  1. CLOZARIL [Suspect]
     Active Substance: CLOZAPINE
     Indication: SCHIZOPHRENIA
     Dosage: 375 OT, UNK
     Route: 048
     Dates: start: 19980121
  2. METOPROLOL [Concomitant]
     Active Substance: METOPROLOL
     Indication: HYPERTENSION
     Dosage: UNK
     Route: 048
  3. CLOMIPRAMINE [Concomitant]
     Active Substance: CLOMIPRAMINE
     Indication: OBSESSIVE-COMPULSIVE DISORDER
     Dosage: 200 MG, QHS (NOCTE)
     Route: 048
  4. CLOMIPRAMINE [Concomitant]
     Active Substance: CLOMIPRAMINE
     Indication: MENOPAUSAL DEPRESSION
  5. PERINDOPRIL [Concomitant]
     Active Substance: PERINDOPRIL
     Indication: HYPERTENSION
     Dosage: UNK
     Route: 048

REACTIONS (15)
  - Malaise [Unknown]
  - Lymphocyte count increased [Unknown]
  - Loss of consciousness [Unknown]
  - Body mass index increased [Unknown]
  - White blood cell count increased [Unknown]
  - Neutrophil count increased [Unknown]
  - Anoxia [Unknown]
  - Cardiac arrest [Unknown]
  - Coagulation time prolonged [Unknown]
  - Coagulation factor decreased [Unknown]
  - Low density lipoprotein increased [Unknown]
  - Myocardial infarction [Fatal]
  - Foreign body [Unknown]
  - Syncope [Unknown]
  - Blood cholesterol increased [Unknown]

NARRATIVE: CASE EVENT DATE: 20111110
